FAERS Safety Report 25446145 (Version 1)
Quarter: 2025Q2

REPORT INFORMATION
  Report Type: Spontaneous
  Country: ES (occurrence: ES)
  Receive Date: 20250617
  Receipt Date: 20250617
  Transmission Date: 20250716
  Serious: Yes (Hospitalization)
  Sender: PFIZER
  Company Number: None

PATIENT
  Age: 88 Year
  Sex: Female

DRUGS (12)
  1. CLINDAMYCIN HYDROCHLORIDE [Suspect]
     Active Substance: CLINDAMYCIN HYDROCHLORIDE
     Indication: Infective uveitis
     Dosage: 300 MG, 3X/DAY (EVERY 8 HOURS)
     Route: 048
     Dates: start: 20250406, end: 20250416
  2. DARAPRIM [Suspect]
     Active Substance: PYRIMETHAMINE
     Indication: Infective uveitis
     Dosage: 25 MG, 3X/DAY (EVERY 8 HOURS)
     Route: 048
     Dates: start: 20250406
  3. OMEPRAZOL KERN PHARMA [Concomitant]
     Dosage: 20 MG, 1X/DAY
     Route: 048
     Dates: start: 20240219
  4. URSOBILANE [Concomitant]
     Dosage: 300 MG, 3X/DAY (EVERY 8 HOURS)
     Route: 048
     Dates: start: 20221013
  5. SPIRONOLACTONE [Concomitant]
     Active Substance: SPIRONOLACTONE
     Dosage: 25 MG, 1X/DAY
     Route: 048
     Dates: start: 20221205
  6. DILTIAZEM STADA [Concomitant]
     Dosage: 60 MG, 1X/DAY
     Route: 048
     Dates: start: 20250110
  7. ENALAPRIL NORMON [Concomitant]
     Dosage: 5 MG, 1X/DAY
     Route: 048
     Dates: start: 20241022
  8. ATORVASTATINA STADAGEN [Concomitant]
     Dosage: 10 MG, 1X/DAY
     Route: 048
     Dates: start: 20200211
  9. ADVENTAN [Concomitant]
     Route: 061
     Dates: start: 20241211
  10. LEVOTHYROXINE SODIUM [Concomitant]
     Active Substance: LEVOTHYROXINE SODIUM
     Dosage: 88 UG, 1X/DAY
     Route: 048
     Dates: start: 20240308
  11. LORAZEPAM KERN PHARMA [Concomitant]
     Dosage: 1 MG, 1X/DAY
     Route: 048
     Dates: start: 20201214
  12. PROLIA [Concomitant]
     Active Substance: DENOSUMAB
     Dates: start: 20220428

REACTIONS (4)
  - Toxic skin eruption [Recovered/Resolved]
  - Pruritus [Recovered/Resolved]
  - Erythema [Recovered/Resolved]
  - Off label use [Unknown]

NARRATIVE: CASE EVENT DATE: 20250406
